FAERS Safety Report 4290392-9 (Version None)
Quarter: 2004Q1

REPORT INFORMATION
  Report Type: 
  Country: None (occurrence: None)
  Receive Date: 20040210
  Receipt Date: 20040120
  Transmission Date: 20041129
  Serious: Yes (Disabling, Other)
  Sender: FDA-Public Use
  Company Number: GB-BRISTOL-MYERS SQUIBB COMPANY-12485611

PATIENT
  Age: 83 Year
  Sex: Male

DRUGS (11)
  1. DAIVONEX [Suspect]
     Indication: PSORIASIS
     Route: 061
     Dates: start: 19830101
  2. CYCLOPENTOLATE HCL [Suspect]
     Indication: PREMEDICATION
     Route: 061
     Dates: start: 20031104, end: 20031104
  3. PHENYLEPHRINE [Suspect]
     Indication: PREMEDICATION
     Route: 061
     Dates: start: 20031104, end: 20031104
  4. CHLORAMPHENICOL [Suspect]
     Indication: PREMEDICATION
     Route: 061
     Dates: start: 20031104, end: 20031104
  5. BENOXINATE [Suspect]
     Route: 061
  6. BALANCED SALT SOLUTION [Suspect]
     Indication: EYE IRRIGATION
     Route: 061
  7. OCUFEN [Suspect]
     Indication: PREMEDICATION
     Route: 061
  8. LIDOCAINE [Suspect]
     Indication: ANAESTHETIC PREMEDICATION
     Dosage: DOSE:  0.5 -1 ML
     Route: 061
  9. BETADINE [Suspect]
     Route: 061
  10. HEALONID [Suspect]
     Indication: EYE OPERATION
     Route: 031
  11. BETNESOL-N [Suspect]
     Route: 061

REACTIONS (1)
  - KERATOPATHY [None]
